FAERS Safety Report 8299645-0 (Version None)
Quarter: 2012Q2

REPORT INFORMATION
  Report Type: 
  Country: None (occurrence: None)
  Receive Date: 20120419
  Receipt Date: 20120413
  Transmission Date: 20120825
  Serious: Yes (Hospitalization, Other)
  Sender: FDA-Public Use
  Company Number: US-ELI_LILLY_AND_COMPANY-US201102001696

PATIENT
  Sex: Female

DRUGS (18)
  1. KLONOPIN [Concomitant]
  2. MULTI-VITAMIN [Concomitant]
  3. XOPENEX HFA [Concomitant]
  4. TYLENOL                                 /SCH/ [Concomitant]
  5. ASACOL [Concomitant]
  6. DEXLANSOPRAZOLE [Concomitant]
  7. FORTEO [Suspect]
     Dosage: 20 UG, QD
     Route: 065
  8. LISINOPRIL AND HYDROCHLOROTHIAZIDE [Concomitant]
  9. MAGNESIUM [Concomitant]
  10. AMLODIPINE [Concomitant]
  11. CALCIUM CARBONATE [Concomitant]
  12. PRISTIQ [Concomitant]
  13. PROVENTIL                               /USA/ [Concomitant]
  14. ZOFRAN [Concomitant]
  15. FENTANYL [Concomitant]
     Route: 062
  16. FORTEO [Suspect]
     Indication: OSTEOPOROSIS
     Dosage: 20 UG, DAILY (1/D)
     Route: 065
     Dates: start: 20110128
  17. FORTEO [Suspect]
     Dosage: 20 UG, QD
  18. HYDROCORTISONE [Concomitant]

REACTIONS (15)
  - LARGE INTESTINAL ULCER [None]
  - NAUSEA [None]
  - INFLAMMATORY BOWEL DISEASE [None]
  - DIZZINESS [None]
  - SHOULDER ARTHROPLASTY [None]
  - HYPERTENSION [None]
  - IMPAIRED GASTRIC EMPTYING [None]
  - GASTROINTESTINAL PAIN [None]
  - WEIGHT DECREASED [None]
  - DIARRHOEA HAEMORRHAGIC [None]
  - VOMITING [None]
  - OSTEOPOROSIS [None]
  - COLITIS ULCERATIVE [None]
  - MOVEMENT DISORDER [None]
  - CATABOLIC STATE [None]
